FAERS Safety Report 10256503 (Version 1)
Quarter: 2014Q2

REPORT INFORMATION
  Report Type: Spontaneous
  Country: US (occurrence: US)
  Receive Date: 20140624
  Receipt Date: 20140624
  Transmission Date: 20141212
  Serious: No
  Sender: FDA-Public Use
  Company Number: US-ZOGENIX, INC.-2012ZX000237

PATIENT
  Age: 22 Year
  Sex: Female
  Weight: 54.48 kg

DRUGS (5)
  1. SUMAVEL DOSEPRO [Suspect]
     Indication: MIGRAINE
     Dates: start: 20120621, end: 20120621
  2. DIAMOX [Concomitant]
     Indication: MASS
  3. TOPIRAMATE [Concomitant]
     Indication: MIGRAINE
     Route: 048
  4. INDOMETHACIN [Concomitant]
     Indication: PAIN
  5. DHE [Concomitant]
     Indication: MASS

REACTIONS (6)
  - Injection site pain [Not Recovered/Not Resolved]
  - Incorrect dose administered by device [Recovered/Resolved]
  - Injection site erythema [Unknown]
  - Injection site swelling [Recovering/Resolving]
  - Injection site haemorrhage [Recovered/Resolved]
  - Drug administered at inappropriate site [Recovered/Resolved]
